FAERS Safety Report 6771583-1 (Version None)
Quarter: 2010Q2

REPORT INFORMATION
  Report Type: 
  Country: None (occurrence: None)
  Receive Date: 20100616
  Receipt Date: 20100602
  Transmission Date: 20101027
  Serious: Yes (Other)
  Sender: FDA-Public Use
  Company Number: PHHY2010US35997

PATIENT
  Sex: Female

DRUGS (3)
  1. DIOVAN [Suspect]
  2. COREG [Concomitant]
  3. CORVITOL [Concomitant]

REACTIONS (3)
  - DEPRESSION [None]
  - HYPERTENSION [None]
  - MEMORY IMPAIRMENT [None]
